FAERS Safety Report 17274354 (Version 2)
Quarter: 2020Q1

REPORT INFORMATION
  Report Type: Spontaneous
  Country: FR (occurrence: FR)
  Receive Date: 20200115
  Receipt Date: 20200206
  Transmission Date: 20200409
  Serious: Yes (Hospitalization)
  Sender: FDA-Public Use
  Company Number: FR-PURDUE PHARMA-GBR-2020-0074313

PATIENT
  Age: 70 Year
  Sex: Male
  Weight: 87 kg

DRUGS (3)
  1. LOVENOX [Concomitant]
     Active Substance: ENOXAPARIN SODIUM
     Indication: THROMBOSIS PROPHYLAXIS
     Dosage: 1 DF, DAILY
     Route: 058
     Dates: start: 201905
  2. OXYNORMORO [Suspect]
     Active Substance: OXYCODONE HYDROCHLORIDE
     Indication: GAIT DISTURBANCE
     Dosage: 5 MG, Q6H (SI BESOIN) (5MG STRENGTH)
     Route: 048
     Dates: start: 20190527, end: 20190527
  3. ORAMORPH [Suspect]
     Active Substance: MORPHINE SULFATE
     Indication: GAIT DISTURBANCE
     Dosage: INCONNUE
     Route: 048
     Dates: start: 20190516, end: 20190523

REACTIONS (3)
  - Rash pustular [Recovered/Resolved]
  - Pyrexia [Recovered/Resolved]
  - Rash maculo-papular [Recovered/Resolved]

NARRATIVE: CASE EVENT DATE: 20190528
